FAERS Safety Report 12689951 (Version 1)
Quarter: 2016Q3

REPORT INFORMATION
  Report Type: Spontaneous
  Country: DK (occurrence: DK)
  Receive Date: 20160826
  Receipt Date: 20160826
  Transmission Date: 20161109
  Serious: Yes (Hospitalization)
  Sender: FDA-Public Use
  Company Number: DK-TEVA-686258ACC

PATIENT
  Age: 64 Year
  Sex: Female

DRUGS (2)
  1. LITHIUM. [Suspect]
     Active Substance: LITHIUM
     Indication: BIPOLAR DISORDER
     Dates: start: 1978, end: 2005
  2. ZYPREXA [Suspect]
     Active Substance: OLANZAPINE
     Indication: BIPOLAR DISORDER
     Dates: start: 2005, end: 201208

REACTIONS (8)
  - Arteriovenous fistula operation [Unknown]
  - Toxicity to various agents [Unknown]
  - Haemodialysis [Unknown]
  - Fatigue [Unknown]
  - Pruritus [Unknown]
  - Nephropathy [Unknown]
  - Renal impairment [Unknown]
  - Decreased appetite [Unknown]

NARRATIVE: CASE EVENT DATE: 201501
